FAERS Safety Report 9942952 (Version 2)
Quarter: 2014Q4

REPORT INFORMATION
  Report Type: Spontaneous
  Country: GB (occurrence: GB)
  Receive Date: 20140303
  Receipt Date: 20141013
  Transmission Date: 20150529
  Serious: Yes (Disabling)
  Sender: FDA-Public Use
  Company Number: GB-ABBVIE-14P-167-1205585-00

PATIENT
  Sex: Female

DRUGS (1)
  1. HUMIRA [Suspect]
     Active Substance: ADALIMUMAB
     Indication: RHEUMATOID ARTHRITIS
     Route: 065

REACTIONS (12)
  - Restlessness [Unknown]
  - Depression [Unknown]
  - Joint swelling [Unknown]
  - Nausea [Unknown]
  - Cataract [Unknown]
  - Arthropathy [Recovering/Resolving]
  - Sleep disorder [Unknown]
  - Gastric disorder [Unknown]
  - Adverse drug reaction [Unknown]
  - Abasia [Unknown]
  - Pollakiuria [Recovering/Resolving]
  - Fatigue [Unknown]
